FAERS Safety Report 5711467-0 (Version None)
Quarter: 2008Q2

REPORT INFORMATION
  Report Type: 
  Country: None (occurrence: None)
  Receive Date: 20080421
  Receipt Date: 20080411
  Transmission Date: 20081010
  Serious: Yes (Other)
  Sender: FDA-Public Use
  Company Number: US-MERCK-0705USA02823

PATIENT
  Sex: Female

DRUGS (2)
  1. FOSAMAX [Suspect]
     Indication: OSTEOPOROSIS
     Route: 048
     Dates: start: 20010101, end: 20060518
  2. ESTROGENS (UNSPECIFIED) [Concomitant]
     Route: 065
     Dates: start: 19960101, end: 20011101

REACTIONS (6)
  - ANKLE FRACTURE [None]
  - BREAST CANCER [None]
  - DEAFNESS [None]
  - DENTAL CARIES [None]
  - INNER EAR DISORDER [None]
  - SEASONAL ALLERGY [None]
